FAERS Safety Report 9539305 (Version 1)
Quarter: 2013Q2

REPORT INFORMATION
  Report Type: Spontaneous
  Country: US (occurrence: None)
  Receive Date: 20130517
  Receipt Date: 20130517
  Transmission Date: 20140414
  Serious: No
  Sender: FDA-Public Use
  Company Number: 1000042843

PATIENT
  Age: 72 Year
  Sex: Female

DRUGS (7)
  1. VIIBRYD (VILAZODONE HYDROCHLORIDE) (10 MILLIGRAM, TABLETS) [Suspect]
     Indication: DEPRESSION
     Route: 048
     Dates: start: 20130117, end: 201302
  2. PREVACID (LANSOPRAZOLE) [Concomitant]
  3. OMEPRAZOLE (OMEPRAZOLE) [Suspect]
  4. PRAVASTATIN (PRAVASTATIN) [Concomitant]
  5. QUNOL COQ10 (QUNOL COQ10) [Concomitant]
  6. ULTIMATE OMEGA (ULTIMATE OMEGA) [Concomitant]
  7. FOLATE (FOLIC ACID) [Concomitant]

REACTIONS (5)
  - Tremor [None]
  - Nervousness [None]
  - Apathy [None]
  - Muscular weakness [None]
  - Asthenia [None]
